FAERS Safety Report 25955336 (Version 1)
Quarter: 2025Q4

REPORT INFORMATION
  Report Type: Report from Study
  Country: US (occurrence: US)
  Receive Date: 20251024
  Receipt Date: 20251024
  Transmission Date: 20260119
  Serious: Yes (Hospitalization)
  Sender: IPSEN BIOPHARMACEUTICALS, INC.
  Company Number: US-IPSEN Group, Research and Development-2023-17090

PATIENT
  Age: 72 Year
  Sex: Female
  Weight: 64.3 kg

DRUGS (1)
  1. TAZVERIK [Suspect]
     Active Substance: TAZEMETOSTAT HYDROBROMIDE
     Indication: Non-Hodgkin^s lymphoma recurrent

REACTIONS (6)
  - Abdominal pain upper [Unknown]
  - Vomiting [Recovered/Resolved]
  - Gastrointestinal wall thickening [Unknown]
  - Constipation [Unknown]
  - Faeces discoloured [Unknown]
  - Nausea [Recovered/Resolved]

NARRATIVE: CASE EVENT DATE: 20230701
